FAERS Safety Report 7927054 (Version 5)
Quarter: 2012Q4

REPORT INFORMATION
  Report Type: 
  Country: US (occurrence: US)
  Receive Date: 20110502
  Receipt Date: 20120905
  Transmission Date: 20130627
  Serious: Yes (Hospitalization, Other)
  Sender: FDA-Public Use
  Company Number: US-ASTRAZENECA-2011SE04683

PATIENT
  Age: 66 Year
  Sex: Female
  Weight: 95.3 kg

DRUGS (16)
  1. NEXIUM [Suspect]
     Indication: ULCER
     Route: 048
     Dates: start: 201006, end: 201010
  2. NEXIUM [Suspect]
     Indication: ULCER
     Dosage: generic
     Route: 048
  3. SEROQUEL [Suspect]
     Indication: BIPOLAR I DISORDER
     Route: 048
     Dates: end: 2008
  4. SEROQUEL [Suspect]
     Indication: BIPOLAR I DISORDER
     Route: 048
  5. ZETIA [Concomitant]
     Indication: BLOOD CHOLESTEROL ABNORMAL
     Route: 048
  6. METFORMIN [Concomitant]
     Indication: DIABETES MELLITUS
     Route: 048
  7. BENADRYL [Concomitant]
     Indication: MULTIPLE ALLERGIES
     Route: 048
  8. DEPAKOTE [Concomitant]
     Route: 048
  9. EFFEXOR [Concomitant]
     Indication: DEPRESSION
     Route: 048
  10. MS CONTIN [Concomitant]
     Indication: PAIN
     Route: 048
  11. NAPROXEN [Concomitant]
     Indication: PAIN
     Route: 048
  12. NEURONTIN [Concomitant]
     Route: 048
  13. SAVELLA [Concomitant]
     Route: 048
  14. SINGULAIR [Concomitant]
     Route: 055
  15. SKELAXIN [Concomitant]
     Route: 048
  16. MAALOX [Concomitant]

REACTIONS (12)
  - Adverse event [Unknown]
  - Ulcer haemorrhage [Unknown]
  - Cataract [Unknown]
  - Diabetes mellitus [Unknown]
  - Glaucoma [Unknown]
  - Pain [Unknown]
  - Gastric disorder [Unknown]
  - Blood cholesterol increased [Unknown]
  - Abdominal discomfort [Unknown]
  - Vomiting [Unknown]
  - Drug hypersensitivity [Unknown]
  - Drug dose omission [Unknown]
